FAERS Safety Report 5634671-9 (Version None)
Quarter: 2008Q1

REPORT INFORMATION
  Report Type: 
  Country: None (occurrence: None)
  Receive Date: 20080222
  Receipt Date: 20080218
  Transmission Date: 20080703
  Serious: Yes (Disabling)
  Sender: FDA-Public Use
  Company Number: FR-ASTRAZENECA-2008CG00273

PATIENT
  Age: 728 Month
  Sex: Female

DRUGS (2)
  1. CRESTOR [Suspect]
     Route: 048
     Dates: start: 20070422, end: 20071015
  2. NEXIUM [Concomitant]
     Route: 048
     Dates: start: 20051015

REACTIONS (1)
  - TENDON DISORDER [None]
